FAERS Safety Report 13020906 (Version 1)
Quarter: 2016Q4

REPORT INFORMATION
  Report Type: Spontaneous
  Country: US (occurrence: US)
  Receive Date: 20161212
  Receipt Date: 20161212
  Transmission Date: 20170207
  Serious: No
  Sender: FDA-Public Use
  Company Number: None

PATIENT
  Sex: Female

DRUGS (1)
  1. TALTZ [Suspect]
     Active Substance: IXEKIZUMAB
     Indication: PSORIASIS
     Dosage: 80MG EVERY 12 WEEKS SQ
     Route: 058
     Dates: start: 20160922

REACTIONS (5)
  - Impaired healing [None]
  - Seborrhoea [None]
  - Alopecia [None]
  - Chromaturia [None]
  - Abscess [None]
